FAERS Safety Report 9764580 (Version 2)
Quarter: 2014Q1

REPORT INFORMATION
  Report Type: Report from Study
  Country: FR (occurrence: FR)
  Receive Date: 20131217
  Receipt Date: 20140109
  Transmission Date: 20141002
  Serious: Yes (Hospitalization)
  Sender: FDA-Public Use
  Company Number: FR-TEVA-450539USA

PATIENT
  Age: 73 Year
  Sex: Male

DRUGS (10)
  1. LEVACT [Suspect]
     Indication: B-CELL SMALL LYMPHOCYTIC LYMPHOMA
     Route: 041
     Dates: start: 20130613, end: 201308
  2. LEVACT [Suspect]
     Route: 041
     Dates: start: 201307
  3. ARZERRA [Suspect]
     Indication: B-CELL SMALL LYMPHOCYTIC LYMPHOMA
     Dosage: 300 MILLIGRAM DAILY; ON DAY 8 BEFORE FIRST CYCLE
     Route: 041
     Dates: start: 20130605, end: 20130605
  4. ARZERRA [Suspect]
     Dosage: 1000 MILLIGRAM DAILY; ON DAY 1 AND DAY 15 (TWICE PER CYCLE)
     Route: 041
     Dates: start: 20130612, end: 201308
  5. METHYLPREDNISOLONE [Concomitant]
     Route: 042
     Dates: start: 20130605, end: 20130605
  6. METHYLPREDNISOLONE [Concomitant]
     Route: 042
     Dates: start: 20130612, end: 201308
  7. INEXIUM [Concomitant]
     Dosage: 20 MILLIGRAM DAILY;
     Route: 048
  8. ZELITREX [Concomitant]
     Dosage: 500 MILLIGRAM DAILY;
     Route: 048
  9. XYZALL [Concomitant]
     Dosage: 5 MILLIGRAM DAILY;
     Route: 048
  10. BACTRIM [Concomitant]
     Dosage: THREE TIMES IN A WEEK
     Route: 048

REACTIONS (1)
  - Cholecystitis acute [Recovered/Resolved]
